FAERS Safety Report 17968240 (Version 1)
Quarter: 2020Q2

REPORT INFORMATION
  Report Type: Spontaneous
  Country: US (occurrence: US)
  Receive Date: 20200630
  Receipt Date: 20200630
  Transmission Date: 20200714
  Serious: Yes (Life-Threatening, Hospitalization, Other)
  Sender: FDA-Public Use
  Company Number: None

PATIENT
  Age: 67 Year
  Sex: Female
  Weight: 66.6 kg

DRUGS (2)
  1. DDAVP [Suspect]
     Active Substance: DESMOPRESSIN ACETATE
     Indication: DIABETES INSIPIDUS
     Dosage: ?          QUANTITY:2 VARIES PER PERSON;OTHER FREQUENCY:MULTIPLE TIMES PER;OTHER ROUTE:INJECTED, PILLS, NASAL SPRAY, MELTS?
  2. DESMOPRESSIN GENERIC [Suspect]
     Active Substance: DESMOPRESSIN

REACTIONS (4)
  - Drug monitoring procedure incorrectly performed [None]
  - Cognitive disorder [None]
  - Product communication issue [None]
  - Hyponatraemia [None]

NARRATIVE: CASE EVENT DATE: 20200603
